FAERS Safety Report 12165932 (Version 2)
Quarter: 2016Q2

REPORT INFORMATION
  Report Type: Other
  Country: AT (occurrence: AT)
  Receive Date: 20160309
  Receipt Date: 20160407
  Transmission Date: 20160815
  Serious: Yes (Hospitalization)
  Sender: FDA-Public Use
  Company Number: AT-SHIRE-AT201602754

PATIENT
  Age: 8 Year
  Sex: Male
  Weight: 27 kg

DRUGS (3)
  1. ELAPRASE [Suspect]
     Active Substance: IDURSULFASE
     Indication: MUCOPOLYSACCHARIDOSIS II
     Dosage: 12 MG ( TWO X 6 MG), 1X/WEEK
     Route: 041
  2. NACL [Concomitant]
     Active Substance: SODIUM CHLORIDE
     Indication: MEDICATION DILUTION
     Dosage: UNK (9%), UNKNOWN
     Route: 041
  3. NACL [Concomitant]
     Active Substance: SODIUM CHLORIDE
     Indication: CATHETER MANAGEMENT
     Dosage: UNK (9%)(FLUSH), UNKNOWN
     Route: 042
     Dates: start: 20160301

REACTIONS (2)
  - Agitation [Unknown]
  - Infection [Unknown]

NARRATIVE: CASE EVENT DATE: 20160301
